FAERS Safety Report 13132786 (Version 2)
Quarter: 2017Q1

REPORT INFORMATION
  Report Type: Spontaneous
  Country: US (occurrence: US)
  Receive Date: 20170120
  Receipt Date: 20170126
  Transmission Date: 20170428
  Serious: Yes (Other)
  Sender: FDA-Public Use
  Company Number: US-AMGEN-USASP2017007740

PATIENT
  Age: 88 Year
  Sex: Male
  Weight: 72.56 kg

DRUGS (5)
  1. PROLIA [Suspect]
     Active Substance: DENOSUMAB
     Indication: OSTEOPOROSIS
     Dosage: UNK, Q6MO
     Route: 065
     Dates: start: 2016
  2. ATENOLOL. [Concomitant]
     Active Substance: ATENOLOL
     Indication: BLOOD PRESSURE ABNORMAL
     Dosage: 25 MG, QD
  3. SENSIPAR [Suspect]
     Active Substance: CINACALCET HYDROCHLORIDE
     Indication: BLOOD CALCIUM INCREASED
     Dosage: 30 MG, QOD
     Route: 048
     Dates: start: 2016
  4. TRAMADOL. [Concomitant]
     Active Substance: TRAMADOL
  5. ATORVASTATIN [Concomitant]
     Active Substance: ATORVASTATIN
     Indication: BLOOD CHOLESTEROL ABNORMAL
     Dosage: 20 MG, QHS

REACTIONS (3)
  - Jaw operation [Unknown]
  - Intentional product misuse [Unknown]
  - Drug dose omission [Unknown]

NARRATIVE: CASE EVENT DATE: 201601
